FAERS Safety Report 8421521-0 (Version None)
Quarter: 2012Q2

REPORT INFORMATION
  Report Type: 
  Country: None (occurrence: None)
  Receive Date: 20120608
  Receipt Date: 20120530
  Transmission Date: 20120825
  Serious: Yes (Disabling)
  Sender: FDA-Public Use
  Company Number: GB-EISAI INC-E7389-02539-SPO-GB

PATIENT
  Age: 58 Year
  Sex: Female

DRUGS (4)
  1. DEXAMETHASONE [Concomitant]
     Route: 048
  2. HALAVEN [Suspect]
     Indication: BREAST CANCER
     Route: 041
     Dates: start: 20111101
  3. ONDANSETRON [Concomitant]
     Route: 048
  4. METOCLOPRAMIDE [Concomitant]
     Route: 048

REACTIONS (1)
  - CATARACT [None]
